FAERS Safety Report 6923644-1 (Version None)
Quarter: 2010Q3

REPORT INFORMATION
  Report Type: 
  Country: None (occurrence: None)
  Receive Date: 20100813
  Receipt Date: 20100807
  Transmission Date: 20110219
  Serious: Yes (Other)
  Sender: FDA-Public Use
  Company Number: A0875643A

PATIENT
  Age: 32 Year
  Sex: Female

DRUGS (2)
  1. EPZICOM [Suspect]
     Indication: ANTIRETROVIRAL THERAPY
     Dosage: 1TAB PER DAY
     Route: 048
  2. VIRAMUNE [Suspect]
     Indication: ANTIRETROVIRAL THERAPY
     Dosage: 400MGD PER DAY
     Route: 048

REACTIONS (4)
  - ABORTION INDUCED [None]
  - CHORIOAMNIONITIS [None]
  - DRUG EXPOSURE DURING PREGNANCY [None]
  - SEPSIS [None]
